FAERS Safety Report 5383377-2 (Version None)
Quarter: 2007Q3

REPORT INFORMATION
  Report Type: 
  Country: None (occurrence: None)
  Receive Date: 20070710
  Receipt Date: 20070704
  Transmission Date: 20080115
  Serious: Yes (Death)
  Sender: FDA-Public Use
  Company Number: GR-ASTRAZENECA-2007SE03851

PATIENT
  Age: 67 Year
  Sex: Male

DRUGS (8)
  1. SEROQUEL [Suspect]
     Indication: DEPRESSION
     Route: 048
     Dates: end: 20070618
  2. LEPUR [Suspect]
     Indication: DYSLIPIDAEMIA
     Route: 048
     Dates: start: 20070101, end: 20070618
  3. EFFEXOR [Suspect]
     Indication: DEPRESSION
     Route: 048
     Dates: end: 20070618
  4. PLAVIX [Concomitant]
     Route: 048
  5. CARVEPEN [Concomitant]
     Route: 048
  6. ACCUPRON [Concomitant]
     Route: 048
  7. LOPRESSOR [Concomitant]
     Route: 048
  8. MONOSORDIL [Concomitant]
     Route: 048

REACTIONS (2)
  - RENAL FAILURE ACUTE [None]
  - RHABDOMYOLYSIS [None]
